FAERS Safety Report 7238693-6 (Version None)
Quarter: 2011Q1

REPORT INFORMATION
  Report Type: 
  Country: None (occurrence: None)
  Receive Date: 20110121
  Receipt Date: 20110111
  Transmission Date: 20110831
  Serious: Yes (Death, Hospitalization)
  Sender: FDA-Public Use
  Company Number: US-ACTELION-A-US2010-42812

PATIENT

DRUGS (5)
  1. AMLODIPINE [Concomitant]
  2. BOSENTAN TABLET UNKNOWN US MG [Suspect]
     Indication: PULMONARY ARTERIAL HYPERTENSION
     Dosage: UNK
     Route: 048
     Dates: start: 20100521
  3. SILDENAFIL [Concomitant]
  4. BOSENTAN TABLET UNKNOWN US MG [Suspect]
     Dosage: 125 MG, BID
     Route: 048
  5. LISINOPRIL [Concomitant]

REACTIONS (6)
  - BLOOD CULTURE POSITIVE [None]
  - BRAIN OEDEMA [None]
  - NEUTROPENIA [None]
  - CANDIDA SEPSIS [None]
  - PULSELESS ELECTRICAL ACTIVITY [None]
  - BRAIN HERNIATION [None]
